FAERS Safety Report 19879371 (Version 3)
Quarter: 2021Q4

REPORT INFORMATION
  Report Type: Report from Study
  Country: US (occurrence: US)
  Receive Date: 20210924
  Receipt Date: 20211028
  Transmission Date: 20220303
  Serious: Yes (Hospitalization, Other)
  Sender: FDA-Public Use
  Company Number: US-JNJFOC-20210103695

PATIENT
  Sex: Female

DRUGS (7)
  1. MACITENTAN [Suspect]
     Active Substance: MACITENTAN
     Indication: Pulmonary arterial hypertension
     Dosage: STARTED IN 2016/2017
     Route: 065
  2. UPTRAVI [Suspect]
     Active Substance: SELEXIPAG
     Indication: Pulmonary arterial hypertension
     Dosage: /AUG/2021
     Route: 048
  3. UPTRAVI [Suspect]
     Active Substance: SELEXIPAG
     Route: 048
  4. UPTRAVI [Suspect]
     Active Substance: SELEXIPAG
     Route: 048
  5. UPTRAVI [Suspect]
     Active Substance: SELEXIPAG
     Route: 048
  6. UPTRAVI [Suspect]
     Active Substance: SELEXIPAG
     Route: 048
  7. UPTRAVI [Suspect]
     Active Substance: SELEXIPAG
     Dosage: 400MCG IN AM AND 600MCG
     Route: 048

REACTIONS (24)
  - Hypotension [Unknown]
  - COVID-19 pneumonia [Unknown]
  - Pulmonary arterial hypertension [Unknown]
  - Pulmonary oedema [Unknown]
  - Renal impairment [Unknown]
  - Pain in jaw [Unknown]
  - Pain [Unknown]
  - Mycobacterium tuberculosis complex test positive [Unknown]
  - Sinus congestion [Unknown]
  - Heart rate abnormal [Unknown]
  - Vision blurred [Unknown]
  - Headache [Not Recovered/Not Resolved]
  - Nausea [Not Recovered/Not Resolved]
  - Dizziness [Unknown]
  - Abdominal pain upper [Unknown]
  - Diarrhoea [Unknown]
  - Eructation [Unknown]
  - Drug ineffective [Unknown]
  - Asthenia [Unknown]
  - Platelet count decreased [Unknown]
  - Blood iron decreased [Unknown]
  - Adverse drug reaction [Unknown]
  - Rhinorrhoea [Unknown]
  - Vomiting [Unknown]

NARRATIVE: CASE EVENT DATE: 20200101
